FAERS Safety Report 6377718-7 (Version None)
Quarter: 2009Q3

REPORT INFORMATION
  Report Type: 
  Country: None (occurrence: None)
  Receive Date: 20090925
  Receipt Date: 20090915
  Transmission Date: 20100115
  Serious: Yes (Death)
  Sender: FDA-Public Use
  Company Number: US-PFIZER INC-2009271271

PATIENT
  Age: 16 Year
  Sex: Female

DRUGS (1)
  1. GEODON [Suspect]
     Indication: AFFECTIVE DISORDER

REACTIONS (2)
  - CARDIAC DISORDER [None]
  - FAT TISSUE INCREASED [None]
